FAERS Safety Report 11246306 (Version 1)
Quarter: 2015Q3

REPORT INFORMATION
  Report Type: Spontaneous
  Country: US (occurrence: None)
  Receive Date: 20150706
  Receipt Date: 20150706
  Transmission Date: 20151125
  Serious: Yes (Hospitalization, Other)
  Sender: FDA-Public Use
  Company Number: US2015GSK068404

PATIENT
  Age: 30 Year
  Sex: Male

DRUGS (3)
  1. TUMS [Suspect]
     Active Substance: CALCIUM CARBONATE
     Indication: GASTROOESOPHAGEAL REFLUX DISEASE
     Route: 048
  2. NAPROXEN (NAPROXEN) UNKNOWN [Suspect]
     Active Substance: NAPROXEN
     Indication: JOINT INJURY
  3. CLINDAMYCIN [Suspect]
     Active Substance: CLINDAMYCIN\CLINDAMYCIN PHOSPHATE
     Indication: JOINT INJURY

REACTIONS (16)
  - Metabolic alkalosis [None]
  - Decreased appetite [None]
  - Blood pressure increased [None]
  - Hypercalcaemia [None]
  - Protein total increased [None]
  - Acute kidney injury [None]
  - Hypovolaemia [None]
  - Constipation [None]
  - Irritability [None]
  - Normochromic normocytic anaemia [None]
  - Blood parathyroid hormone decreased [None]
  - Vomiting [None]
  - Dyspepsia [None]
  - Milk-alkali syndrome [None]
  - Nausea [None]
  - Thirst [None]
